FAERS Safety Report 17604758 (Version 3)
Quarter: 2022Q2

REPORT INFORMATION
  Report Type: Spontaneous
  Country: US (occurrence: US)
  Receive Date: 20200331
  Receipt Date: 20220628
  Transmission Date: 20220721
  Serious: Yes (Other)
  Sender: FDA-Public Use
  Company Number: US-AMGEN-USASP2020048789

PATIENT

DRUGS (1)
  1. XGEVA [Suspect]
     Active Substance: DENOSUMAB
     Indication: Prostate cancer metastatic
     Dosage: UNK
     Route: 065

REACTIONS (5)
  - Multiple fractures [Unknown]
  - Pathological fracture [Unknown]
  - Traumatic fracture [Unknown]
  - Compression fracture [Unknown]
  - Osteonecrosis of jaw [Unknown]
